FAERS Safety Report 12408589 (Version 2)
Quarter: 2016Q3

REPORT INFORMATION
  Report Type: Spontaneous
  Country: JP (occurrence: JP)
  Receive Date: 20160526
  Receipt Date: 20160705
  Transmission Date: 20161109
  Serious: Yes (Other)
  Sender: FDA-Public Use
  Company Number: JP-PFIZER INC-2016274503

PATIENT
  Age: 70 Year
  Sex: Male

DRUGS (5)
  1. LYRICA [Suspect]
     Active Substance: PREGABALIN
     Dosage: 75 MG DAILY (25 MG IN THE MORNING AND 50 MG IN THE EVENING)
     Route: 048
     Dates: start: 20160510
  2. LYRICA [Suspect]
     Active Substance: PREGABALIN
     Dosage: 50 MG, 2X/DAY
     Route: 048
     Dates: start: 20150623, end: 20150706
  3. LOXOPROFEN [Suspect]
     Active Substance: LOXOPROFEN
     Dosage: UNK
  4. LYRICA [Suspect]
     Active Substance: PREGABALIN
     Dosage: 25 MG, 2X/DAY
     Route: 048
     Dates: start: 20150609, end: 20150622
  5. LYRICA [Suspect]
     Active Substance: PREGABALIN
     Dosage: 75 MG DAILY (25 MG IN THE MORNING AND 50 MG IN THE EVENING)
     Route: 048
     Dates: start: 20150707, end: 20150803

REACTIONS (2)
  - Gastrointestinal haemorrhage [Recovered/Resolved]
  - Faeces discoloured [Recovered/Resolved]
